FAERS Safety Report 5697123-6 (Version None)
Quarter: 2008Q2

REPORT INFORMATION
  Report Type: 
  Country: None (occurrence: None)
  Receive Date: 20080408
  Receipt Date: 20080327
  Transmission Date: 20081010
  Serious: Yes (Death)
  Sender: FDA-Public Use
  Company Number: SK-ELI_LILLY_AND_COMPANY-SK200802001617

PATIENT
  Age: 69 Year
  Sex: Female

DRUGS (12)
  1. FORTEO [Suspect]
     Indication: OSTEOPOROSIS
     Dosage: 20 UG, DAILY (1/D)
     Route: 058
     Dates: start: 20071119
  2. CALCIUM W/COLECALCIFEROL [Concomitant]
     Indication: OSTEOPOROSIS
     Dosage: UNK, UNKNOWN
     Route: 065
  3. PREDUCTAL [Concomitant]
     Dosage: UNK, UNKNOWN
     Route: 065
  4. VASOCARDIN [Concomitant]
     Dosage: UNK, UNKNOWN
     Route: 065
  5. LACIPIL [Concomitant]
     Dosage: UNK, UNKNOWN
     Route: 065
  6. LOSARTAN POTASSIUM AND HYDROCHLOROTHIAZIDE [Concomitant]
     Dosage: UNK, UNKNOWN
     Route: 065
  7. ATORVASTATIN [Concomitant]
     Dosage: UNK, UNKNOWN
     Route: 065
  8. ANOPYRIN [Concomitant]
     Dosage: UNK, UNKNOWN
     Route: 065
  9. EUTHYROX [Concomitant]
     Dosage: UNK, UNKNOWN
     Route: 065
  10. ESSENTIALE FORTE [Concomitant]
     Dosage: UNK, UNKNOWN
     Route: 065
  11. LAGOSA [Concomitant]
     Dosage: UNK, UNKNOWN
     Route: 065
  12. URSOSAN [Concomitant]
     Dosage: UNK, UNKNOWN
     Route: 065

REACTIONS (2)
  - BILIARY NEOPLASM [None]
  - MALIGNANT NEOPLASM PROGRESSION [None]
